FAERS Safety Report 20263902 (Version 2)
Quarter: 2022Q1

REPORT INFORMATION
  Report Type: Spontaneous
  Country: US (occurrence: US)
  Receive Date: 20211231
  Receipt Date: 20220113
  Transmission Date: 20220424
  Serious: No
  Sender: FDA-Public Use
  Company Number: US-AMGEN-USASP2021205637

PATIENT
  Age: 65 Year
  Sex: Female

DRUGS (1)
  1. MVASI [Suspect]
     Active Substance: BEVACIZUMAB-AWWB
     Indication: Ovarian cancer recurrent
     Dosage: 470 MILLIGRAM
     Route: 065

REACTIONS (2)
  - Mental status changes [Unknown]
  - Off label use [Unknown]

NARRATIVE: CASE EVENT DATE: 20211222
